FAERS Safety Report 7803866-8 (Version None)
Quarter: 2011Q4

REPORT INFORMATION
  Report Type: 
  Country: None (occurrence: None)
  Receive Date: 20111010
  Receipt Date: 20111003
  Transmission Date: 20120403
  Serious: Yes (Death, Congenital Anomaly, Other)
  Sender: FDA-Public Use
  Company Number: US-PFIZER INC-2011158080

PATIENT
  Sex: Female

DRUGS (1)
  1. DETROL LA [Suspect]
     Indication: HYPERTONIC BLADDER
     Dosage: UNK,
     Route: 064

REACTIONS (3)
  - INTRA-UTERINE DEATH [None]
  - RENAL APLASIA [None]
  - MATERNAL EXPOSURE DURING PREGNANCY [None]
